FAERS Safety Report 12388805 (Version 3)
Quarter: 2016Q2

REPORT INFORMATION
  Report Type: Spontaneous
  Country: VE (occurrence: VE)
  Receive Date: 20160520
  Receipt Date: 20160625
  Transmission Date: 20160815
  Serious: Yes (Hospitalization)
  Sender: FDA-Public Use
  Company Number: PHHY2016VE058888

PATIENT
  Age: 3 Year
  Sex: Male
  Weight: 14.6 kg

DRUGS (5)
  1. EPAMIN [Suspect]
     Active Substance: PHENYTOIN SODIUM
     Indication: SEIZURE
     Dosage: 10 CM3, QD
     Route: 065
     Dates: start: 2012
  2. PROVICAR//LEVOCARNITINE [Concomitant]
     Indication: PRODUCT USED FOR UNKNOWN INDICATION
     Dosage: 10 CM3, QD
     Route: 065
     Dates: start: 20130105
  3. TRILEPTAL [Suspect]
     Active Substance: OXCARBAZEPINE
     Indication: EPILEPSY
     Dosage: 7 CM3, Q12H
     Route: 048
     Dates: start: 2012
  4. TRILEPTAL [Suspect]
     Active Substance: OXCARBAZEPINE
     Indication: SEIZURE
     Dosage: 16 CM3, QD
     Route: 048
     Dates: start: 20130103
  5. VALPRON//VALPROATE SODIUM [Suspect]
     Active Substance: VALPROATE SODIUM
     Indication: PRODUCT USED FOR UNKNOWN INDICATION
     Route: 065

REACTIONS (5)
  - Pyrexia [Recovering/Resolving]
  - Influenza [Recovering/Resolving]
  - Epilepsy [Recovering/Resolving]
  - Ear pain [Recovering/Resolving]
  - Seizure [Recovering/Resolving]

NARRATIVE: CASE EVENT DATE: 20160421
